FAERS Safety Report 6599181-3 (Version None)
Quarter: 2010Q1

REPORT INFORMATION
  Report Type: 
  Country: None (occurrence: None)
  Receive Date: 20100212
  Receipt Date: 20090921
  Transmission Date: 20100710
  Serious: No
  Sender: FDA-Public Use
  Company Number: 2009-00614

PATIENT
  Age: 64 Year
  Sex: Female
  Weight: 81.6475 kg

DRUGS (1)
  1. ZICAM COLD REMEDY  GEL SWABS [Suspect]
     Dosage: QID - OFF/ON FOR 4 YERAS
     Dates: start: 20090601

REACTIONS (2)
  - AGEUSIA [None]
  - ANOSMIA [None]
